FAERS Safety Report 5736105-2 (Version None)
Quarter: 2008Q2

REPORT INFORMATION
  Report Type: 
  Country: None (occurrence: None)
  Receive Date: 20080509
  Receipt Date: 20080429
  Transmission Date: 20081010
  Serious: Yes (Hospitalization)
  Sender: FDA-Public Use
  Company Number: 2008AL002738

PATIENT
  Age: 97 Year
  Sex: Male

DRUGS (2)
  1. DIGOXIN [Suspect]
     Indication: EXTRASYSTOLES
     Dosage: PO
     Route: 048
     Dates: start: 19960401
  2. TYLENOL [Concomitant]

REACTIONS (12)
  - CONFUSIONAL STATE [None]
  - DIABETES MELLITUS [None]
  - DIZZINESS [None]
  - DYSPNOEA [None]
  - HAEMATOMA [None]
  - HEART RATE DECREASED [None]
  - HEART RATE IRREGULAR [None]
  - HYPOTENSION [None]
  - MICTURITION DISORDER [None]
  - OEDEMA [None]
  - PNEUMONIA ASPIRATION [None]
  - SWELLING [None]
